FAERS Safety Report 6960992-3 (Version None)
Quarter: 2010Q3

REPORT INFORMATION
  Report Type: 
  Country: None (occurrence: None)
  Receive Date: 20100901
  Receipt Date: 20100823
  Transmission Date: 20110219
  Serious: Yes (Other)
  Sender: FDA-Public Use
  Company Number: US-WATSON-2010-11356

PATIENT
  Age: 7 Year
  Sex: Male
  Weight: 23.5 kg

DRUGS (1)
  1. ETOPOSIDE (WATSON LABORATORIES) [Suspect]
     Indication: LYMPHOHISTIOCYTOSIS
     Dosage: 150 MG/M2, 2/WEEK
     Route: 065

REACTIONS (1)
  - MYOCARDIAL INFARCTION [None]
